FAERS Safety Report 23138799 (Version 2)
Quarter: 2023Q4

REPORT INFORMATION
  Report Type: Spontaneous
  Country: US (occurrence: US)
  Receive Date: 20231102
  Receipt Date: 20231109
  Transmission Date: 20240110
  Serious: Yes (Hospitalization, Other)
  Sender: FDA-Public Use
  Company Number: US-MLMSERVICE-20231023-4616533-1

PATIENT
  Age: 34 Year
  Sex: Female

DRUGS (4)
  1. TESTOSTERONE CYPIONATE [Suspect]
     Active Substance: TESTOSTERONE CYPIONATE
     Indication: Gender reassignment therapy
     Dosage: 200 MG, EVERY 2 WEEKS FOR NEARLY 5 YEARS
     Route: 030
     Dates: start: 201602, end: 2021
  2. TESTOSTERONE CYPIONATE [Suspect]
     Active Substance: TESTOSTERONE CYPIONATE
     Dosage: 160 MG EVERY 2 WEEKS
     Route: 058
     Dates: start: 202301, end: 202303
  3. TESTOSTERONE CYPIONATE [Suspect]
     Active Substance: TESTOSTERONE CYPIONATE
     Dosage: DOSE DECREASED
     Route: 058
     Dates: start: 202102, end: 2022
  4. TESTOSTERONE CYPIONATE [Suspect]
     Active Substance: TESTOSTERONE CYPIONATE
     Indication: Anxiety
     Dosage: 40.5 MG, DAILY
     Route: 062
     Dates: start: 2022

REACTIONS (6)
  - Ovarian granulosa cell tumour [Recovering/Resolving]
  - Condition aggravated [Recovering/Resolving]
  - Off label use [Unknown]
  - Off label use [Unknown]
  - Product use issue [Unknown]
  - Off label use [Unknown]

NARRATIVE: CASE EVENT DATE: 20160201
